FAERS Safety Report 17898992 (Version 1)
Quarter: 2020Q2

REPORT INFORMATION
  Report Type: Spontaneous
  Country: KR (occurrence: KR)
  Receive Date: 20200615
  Receipt Date: 20200615
  Transmission Date: 20200714
  Serious: Yes (Other)
  Sender: FDA-Public Use
  Company Number: KR-NVP-000005

PATIENT
  Age: 4 Year

DRUGS (4)
  1. SIROLIMUS. [Suspect]
     Active Substance: SIROLIMUS
     Indication: ACTIVATED PI3 KINASE DELTA SYNDROME
     Dosage: (3.6 MG/M2)
     Route: 065
  2. SIROLIMUS. [Suspect]
     Active Substance: SIROLIMUS
     Indication: ACTIVATED PI3 KINASE DELTA SYNDROME
     Route: 065
  3. SIROLIMUS. [Suspect]
     Active Substance: SIROLIMUS
     Indication: ACTIVATED PI3 KINASE DELTA SYNDROME
     Dosage: 2.9 MG/M2
     Route: 065
  4. SIROLIMUS. [Suspect]
     Active Substance: SIROLIMUS
     Indication: ACTIVATED PI3 KINASE DELTA SYNDROME
     Dosage: (4.3 MG/M2)
     Route: 065

REACTIONS (4)
  - Cytomegalovirus colitis [Unknown]
  - Blood creatinine increased [Recovered/Resolved]
  - Drug effective for unapproved indication [Unknown]
  - Drug level increased [Recovered/Resolved]
